FAERS Safety Report 10253294 (Version 1)
Quarter: 2014Q2

REPORT INFORMATION
  Report Type: Spontaneous
  Country: US (occurrence: US)
  Receive Date: 20140623
  Receipt Date: 20140623
  Transmission Date: 20141212
  Serious: No
  Sender: FDA-Public Use
  Company Number: US-SHIONOGI, INC-2014000162

PATIENT
  Age: 70 Year
  Sex: Female

DRUGS (4)
  1. OSPHENA [Suspect]
     Indication: VULVOVAGINAL DRYNESS
     Dosage: UNK
     Route: 065
     Dates: start: 20140307, end: 20140317
  2. OSPHENA [Suspect]
     Indication: DYSPAREUNIA
  3. RANITIDINE [Concomitant]
     Indication: PRODUCT USED FOR UNKNOWN INDICATION
     Dosage: UNK
     Route: 065
  4. LEVOTHYROXINE [Concomitant]
     Indication: PRODUCT USED FOR UNKNOWN INDICATION
     Dosage: UNK
     Route: 065
     Dates: start: 201403

REACTIONS (4)
  - Anxiety [Recovering/Resolving]
  - Restlessness [Unknown]
  - Insomnia [Recovering/Resolving]
  - Hot flush [Recovering/Resolving]
